FAERS Safety Report 17057818 (Version 1)
Quarter: 2019Q4

REPORT INFORMATION
  Report Type: Spontaneous
  Country: US (occurrence: US)
  Receive Date: 20191120
  Receipt Date: 20191120
  Transmission Date: 20200122
  Serious: Yes (Other)
  Sender: FDA-Public Use
  Company Number: None

PATIENT
  Age: 15 Year
  Sex: Male
  Weight: 49.95 kg

DRUGS (7)
  1. JORNAY PM EXTENDED-RELEASE [Suspect]
     Active Substance: METHYLPHENIDATE HYDROCHLORIDE
     Indication: ATTENTION DEFICIT/HYPERACTIVITY DISORDER
     Dosage: ?          QUANTITY:1 CAPSULE(S);OTHER FREQUENCY:NIGHTTIME;?
     Route: 048
     Dates: start: 20190927, end: 20191115
  2. PROZAC [Concomitant]
     Active Substance: FLUOXETINE HYDROCHLORIDE
  3. FLUOXETINE [Concomitant]
     Active Substance: FLUOXETINE HYDROCHLORIDE
  4. TRAZODONE [Concomitant]
     Active Substance: TRAZODONE HYDROCHLORIDE
  5. CLARITIN [Concomitant]
     Active Substance: LORATADINE
  6. CONCERTA [Concomitant]
     Active Substance: METHYLPHENIDATE HYDROCHLORIDE
  7. MELATONIN [Concomitant]
     Active Substance: MELATONIN

REACTIONS (14)
  - Migraine [None]
  - Nausea [None]
  - Somnolence [None]
  - Loss of personal independence in daily activities [None]
  - Social avoidant behaviour [None]
  - Depression [None]
  - Behaviour disorder [None]
  - Poor personal hygiene [None]
  - Decreased appetite [None]
  - Irritability [None]
  - Delusion [None]
  - Disturbance in attention [None]
  - Dental disorder prophylaxis [None]
  - Abdominal pain upper [None]

NARRATIVE: CASE EVENT DATE: 20191102
